FAERS Safety Report 11130190 (Version 4)
Quarter: 2016Q3

REPORT INFORMATION
  Report Type: Report from Study
  Country: US (occurrence: US)
  Receive Date: 20150521
  Receipt Date: 20160801
  Transmission Date: 20161109
  Serious: Yes (Other)
  Sender: FDA-Public Use
  Company Number: US-UCBSA-2015016284

PATIENT
  Age: 48 Year
  Sex: Female

DRUGS (2)
  1. CERTOLIZUMAB PEGOL [Suspect]
     Active Substance: CERTOLIZUMAB PEGOL
     Indication: CROHN^S DISEASE
     Dosage: 200 MG, EV 2 WEEKS(QOW) (EXP DATE: JUL-2017, DEC-2018), NDC # : 50474-700-62.
     Route: 058
     Dates: start: 20090312
  2. FLAGYL [Concomitant]
     Active Substance: METRONIDAZOLE\METRONIDAZOLE HYDROCHLORIDE
     Indication: POUCHITIS
     Dosage: UNK

REACTIONS (3)
  - Infection [Unknown]
  - Drug administered at inappropriate site [Unknown]
  - Pouchitis [Not Recovered/Not Resolved]

NARRATIVE: CASE EVENT DATE: 20150515
